FAERS Safety Report 5756292-X (Version None)
Quarter: 2008Q2

REPORT INFORMATION
  Report Type: 
  Country: None (occurrence: None)
  Receive Date: 20080528
  Receipt Date: 20080528
  Transmission Date: 20081010
  Serious: Yes (Hospitalization)
  Sender: FDA-Public Use
  Company Number: None

PATIENT
  Age: 92 Year
  Sex: Male

DRUGS (1)
  1. MACROBID [Suspect]
     Indication: URINARY TRACT INFECTION
     Dosage: 100 MG  BID PO
     Route: 048
     Dates: start: 20080521, end: 20080526

REACTIONS (3)
  - HYPOAESTHESIA [None]
  - MENTAL STATUS CHANGES [None]
  - PARAESTHESIA [None]
